FAERS Safety Report 23379285 (Version 1)
Quarter: 2024Q1

REPORT INFORMATION
  Report Type: Spontaneous
  Country: US (occurrence: None)
  Receive Date: 20240107
  Receipt Date: 20240107
  Transmission Date: 20240410
  Serious: Yes (unspecified)
  Sender: FDA-Public Use
  Company Number: None

PATIENT
  Age: 78 Year
  Sex: Female

DRUGS (2)
  1. VABYSMO [Suspect]
     Active Substance: FARICIMAB\FARICIMAB-SVOA
     Indication: Neovascular age-related macular degeneration
     Dosage: 0.5ML
     Dates: start: 20230918
  2. Vabysmo (Faricimab) [Concomitant]
     Dates: start: 20230918

REACTIONS (10)
  - Vitritis [None]
  - Iridocyclitis [None]
  - Chorioretinitis [None]
  - Hypopyon [None]
  - Culture positive [None]
  - Staphylococcal infection [None]
  - Laboratory test interference [None]
  - False positive investigation result [None]
  - Subretinal fluid [None]
  - Symptom recurrence [None]

NARRATIVE: CASE EVENT DATE: 20230918
